FAERS Safety Report 7082647-X (Version None)
Quarter: 2010Q4

REPORT INFORMATION
  Report Type: 
  Country: None (occurrence: None)
  Receive Date: 20101104
  Receipt Date: 20101026
  Transmission Date: 20110411
  Serious: Yes (Hospitalization)
  Sender: FDA-Public Use
  Company Number: US-JNJFOC-20101007480

PATIENT
  Sex: Male

DRUGS (3)
  1. INVEGA [Suspect]
     Indication: ILL-DEFINED DISORDER
     Route: 048
  2. MELATONIN [Concomitant]
     Indication: INSOMNIA
  3. MINOCYCLINE HCL [Concomitant]
     Indication: ACNE

REACTIONS (5)
  - DISSEMINATED INTRAVASCULAR COAGULATION [None]
  - HEAT STROKE [None]
  - RESPIRATORY FAILURE [None]
  - RHABDOMYOLYSIS [None]
  - UNRESPONSIVE TO STIMULI [None]
